FAERS Safety Report 24791901 (Version 1)
Quarter: 2024Q4

REPORT INFORMATION
  Report Type: Spontaneous
  Country: US (occurrence: US)
  Receive Date: 20241231
  Receipt Date: 20241231
  Transmission Date: 20250114
  Serious: Yes (Other)
  Sender: ENDO
  Company Number: US-ENDO USA, INC.-2024-051024

PATIENT
  Sex: Female

DRUGS (2)
  1. OPANA ER [Suspect]
     Active Substance: OXYMORPHONE HYDROCHLORIDE
     Indication: Back pain
     Dosage: UNK UNKNOWN, UNKNOWN (ABOUT 15-20 YEARS)
     Route: 065
  2. OPANA [Suspect]
     Active Substance: OXYMORPHONE HYDROCHLORIDE
     Indication: Back pain
     Dosage: UNK UNKNOWN, UNKNOWN (ABOUT 15-20 YEARS)
     Route: 065

REACTIONS (1)
  - Spinal operation [Recovered/Resolved]
